FAERS Safety Report 25138090 (Version 2)
Quarter: 2025Q1

REPORT INFORMATION
  Report Type: Spontaneous
  Country: US (occurrence: US)
  Receive Date: 20250329
  Receipt Date: 20250329
  Transmission Date: 20250409
  Serious: Yes (Other)
  Sender: RADIUS PHARM
  Company Number: US-RADIUS HEALTH INC.-US-RADIUS-25045773

PATIENT
  Sex: Female

DRUGS (11)
  1. TYMLOS [Suspect]
     Active Substance: ABALOPARATIDE
     Indication: Osteoporosis
     Dosage: 80 MICROGRAM, QD
     Route: 058
  2. SIMETHICONE LIQ [Concomitant]
     Indication: Product used for unknown indication
  3. DILTIAZEM HC CP2 [Concomitant]
     Indication: Product used for unknown indication
  4. ELIQUIS [Concomitant]
     Active Substance: APIXABAN
     Indication: Product used for unknown indication
  5. GLIPIZIDE TAB [Concomitant]
     Indication: Product used for unknown indication
  6. HYDRALAZINE TAB [Concomitant]
     Indication: Product used for unknown indication
  7. IRBESARTAN-H TAB [Concomitant]
     Indication: Product used for unknown indication
  8. LEVOTHYROXIN TAB [Concomitant]
     Indication: Product used for unknown indication
  9. METOPROLOL T TAB [Concomitant]
     Indication: Product used for unknown indication
  10. OZEMPIC [Concomitant]
     Active Substance: SEMAGLUTIDE
     Indication: Product used for unknown indication
  11. PANTOPRAZOLE TBE [Concomitant]
     Indication: Product used for unknown indication

REACTIONS (4)
  - Atrial fibrillation [Recovered/Resolved]
  - Flatulence [Recovered/Resolved]
  - Gastrooesophageal reflux disease [Recovered/Resolved]
  - Abdominal distension [Recovered/Resolved]
